FAERS Safety Report 6292593-7 (Version None)
Quarter: 2009Q3

REPORT INFORMATION
  Report Type: 
  Country: None (occurrence: None)
  Receive Date: 20090729
  Receipt Date: 20090720
  Transmission Date: 20100115
  Serious: Yes (Hospitalization, Other)
  Sender: FDA-Public Use
  Company Number: ADR10872009

PATIENT
  Age: 61 Year
  Sex: Female

DRUGS (5)
  1. AMLODIPINE [Suspect]
     Indication: HYPERTENSION
     Dosage: 10 MG/DAY, ORAL
     Route: 048
  2. AMLODIPINE [Suspect]
     Dosage: DOSE REDUCED
  3. BENDROFLUMETHIAZIDE [Concomitant]
  4. TAMOXIFEN [Concomitant]
  5. KALMS (CONCENTRATED COMPOUND GENTIAN INFUSION/GENTIAN EXTRACT/HUMULUS/ [Concomitant]

REACTIONS (5)
  - APLASTIC ANAEMIA [None]
  - CONTUSION [None]
  - EPISTAXIS [None]
  - MALAISE [None]
  - PANCYTOPENIA [None]
